FAERS Safety Report 6393801-4 (Version None)
Quarter: 2009Q4

REPORT INFORMATION
  Report Type: 
  Country: None (occurrence: None)
  Receive Date: 20091008
  Receipt Date: 20091002
  Transmission Date: 20100525
  Serious: Yes (Death, Hospitalization, Other)
  Sender: FDA-Public Use
  Company Number: FR-ELI_LILLY_AND_COMPANY-FR200905003777

PATIENT
  Sex: Male

DRUGS (13)
  1. ALIMTA [Suspect]
     Indication: LUNG ADENOCARCINOMA
     Dosage: 970 MG, UNKNOWN
     Route: 042
     Dates: start: 20090417, end: 20090417
  2. FOLIC ACID [Concomitant]
     Indication: VITAMIN SUPPLEMENTATION
     Dosage: UNK, UNKNOWN
     Route: 065
     Dates: start: 20090408
  3. VITAMIN B-12 [Concomitant]
     Indication: VITAMIN SUPPLEMENTATION
     Dosage: UNK, UNKNOWN
     Route: 065
     Dates: start: 20090408
  4. CORTICOSTEROID NOS [Concomitant]
     Indication: PROPHYLAXIS
     Dosage: UNK, UNKNOWN
     Route: 065
     Dates: start: 20090408
  5. NOVONORM [Concomitant]
     Dosage: 2 MG, 3/D
  6. GLUCOPHAGE [Concomitant]
     Dosage: 1000 MG, 3/D
  7. SELOKEN [Concomitant]
     Dosage: 0.5 DSGF, DAILY (1/D)
  8. PREVISCAN [Concomitant]
     Dosage: UNK, UNKNOWN
  9. DIAMICRON [Concomitant]
     Dosage: 30 MG, 3/D
  10. DIFFU K [Concomitant]
     Dosage: 600 MG, 3/D
  11. ZOPICLONE [Concomitant]
     Dosage: 7.5 MG, DAILY (1/D)
  12. LASILIX [Concomitant]
     Dosage: 40 MG, 2/D
  13. HEMIGOXINE [Concomitant]
     Dosage: 125 MG, DAILY (1/D)

REACTIONS (7)
  - ACUTE PULMONARY OEDEMA [None]
  - CONJUNCTIVAL HAEMORRHAGE [None]
  - DERMATITIS BULLOUS [None]
  - DERMATITIS EXFOLIATIVE [None]
  - FEBRILE BONE MARROW APLASIA [None]
  - MUCOSAL INFLAMMATION [None]
  - PURPURA [None]
